FAERS Safety Report 13075891 (Version 1)
Quarter: 2016Q4

REPORT INFORMATION
  Report Type: Spontaneous
  Country: US (occurrence: US)
  Receive Date: 20161230
  Receipt Date: 20161230
  Transmission Date: 20170207
  Serious: Yes (Hospitalization)
  Sender: FDA-Public Use
  Company Number: None

PATIENT
  Age: 62 Year
  Sex: Male
  Weight: 177.5 kg

DRUGS (1)
  1. WARFARIN [Suspect]
     Active Substance: WARFARIN
     Indication: ATRIAL FIBRILLATION
     Route: 048
     Dates: start: 20150601

REACTIONS (5)
  - Upper gastrointestinal haemorrhage [None]
  - Tonsillar haemorrhage [None]
  - International normalised ratio increased [None]
  - Mass [None]
  - Haemoglobin decreased [None]

NARRATIVE: CASE EVENT DATE: 20160623
